FAERS Safety Report 25998288 (Version 3)
Quarter: 2025Q4

REPORT INFORMATION
  Report Type: Report from Study
  Country: CA (occurrence: CA)
  Receive Date: 20251105
  Receipt Date: 20251225
  Transmission Date: 20260119
  Serious: Yes (Other)
  Sender: ALEXION PHARMACEUTICALS
  Company Number: CA-AstraZeneca-CH-00984039A

PATIENT
  Age: 80 Year
  Sex: Male

DRUGS (20)
  1. SOLIRIS [Suspect]
     Active Substance: ECULIZUMAB
     Indication: Nephropathy
     Dosage: 1200 MG PRE KIDNEY TRANSPLANT
     Dates: start: 20211216, end: 20211216
  2. SOLIRIS [Suspect]
     Active Substance: ECULIZUMAB
     Dosage: 900 MG 1 DAY POST KIDNEY TRANSPLANT
  3. SOLIRIS [Suspect]
     Active Substance: ECULIZUMAB
     Dosage: 900 MILLIGRAM, QW, FOR 4 DOSES
     Dates: start: 20220204, end: 20220225
  4. SOLIRIS [Suspect]
     Active Substance: ECULIZUMAB
     Dosage: 1200 MILLIGRAM, Q2W
     Dates: start: 20220311
  5. SOLIRIS [Suspect]
     Active Substance: ECULIZUMAB
     Dosage: 1200 MILLIGRAM, Q2W
     Dates: start: 20251016
  6. TACROLIMUS [Concomitant]
     Active Substance: TACROLIMUS
     Dosage: 5 MILLIGRAM
     Route: 061
  7. MYCOPHENOLIC ACID [Concomitant]
     Active Substance: MYCOPHENOLIC ACID
     Dosage: UNK
     Route: 061
  8. PREDNISONE [Concomitant]
     Active Substance: PREDNISONE
     Dosage: UNK
     Route: 061
  9. BACTRIM [Concomitant]
     Active Substance: SULFAMETHOXAZOLE\TRIMETHOPRIM
     Dosage: UNK
     Route: 061
  10. VALTREX [Concomitant]
     Active Substance: VALACYCLOVIR HYDROCHLORIDE
     Dosage: UNK
     Route: 061
  11. PENICILLIN [Concomitant]
     Active Substance: PENICILLIN
     Dosage: UNK
     Route: 061
  12. GABAPENTIN [Concomitant]
     Active Substance: GABAPENTIN
     Dosage: UNK
     Route: 061
  13. PURE BAKING SODA [Concomitant]
     Active Substance: SODIUM BICARBONATE
     Dosage: UNK
     Route: 061
  14. ALLOPURINOL [Concomitant]
     Active Substance: ALLOPURINOL
     Dosage: UNK
     Route: 061
  15. CALCIUM [Concomitant]
     Active Substance: CALCIUM
     Dosage: UNK
     Route: 061
  16. VITAMIN D [Concomitant]
     Active Substance: VITAMIN D NOS
     Dosage: UNK
     Route: 061
  17. RISEDRONATE SODIUM [Concomitant]
     Active Substance: RISEDRONATE SODIUM
     Dosage: UNK
     Route: 061
  18. PANTOPRAZOLE SODIUM [Concomitant]
     Active Substance: PANTOPRAZOLE SODIUM
     Dosage: UNK
     Route: 061
  19. FLOMAX [Concomitant]
     Active Substance: TAMSULOSIN HYDROCHLORIDE
     Dosage: UNK
     Route: 061
  20. FRAGMIN [Concomitant]
     Active Substance: DALTEPARIN SODIUM
     Dosage: UNK

REACTIONS (1)
  - Fall [Recovering/Resolving]

NARRATIVE: CASE EVENT DATE: 20251030
